FAERS Safety Report 11793673 (Version 1)
Quarter: 2015Q4

REPORT INFORMATION
  Report Type: Report from Study
  Country: AU (occurrence: AU)
  Receive Date: 20151202
  Receipt Date: 20151202
  Transmission Date: 20160305
  Serious: Yes (Hospitalization)
  Sender: FDA-Public Use
  Company Number: AU-BIOGENIDEC-2015BI157737

PATIENT
  Sex: Female

DRUGS (9)
  1. TECFIDERA [Suspect]
     Active Substance: DIMETHYL FUMARATE
     Indication: MULTIPLE SCLEROSIS
     Route: 048
     Dates: start: 20140319
  2. LYRICA [Concomitant]
     Active Substance: PREGABALIN
  3. BICOR [Concomitant]
     Active Substance: BISOPROLOL FUMARATE
  4. VITAMIN D [Concomitant]
     Active Substance: CHOLECALCIFEROL
  5. RANAPRIL [Concomitant]
  6. SENOCOT [Concomitant]
  7. PANADEINE FORTE [Concomitant]
     Active Substance: ACETAMINOPHEN\CODEINE PHOSPHATE
  8. INSULIN [Concomitant]
     Active Substance: INSULIN NOS
  9. CALCIUM [Concomitant]
     Active Substance: CALCIUM

REACTIONS (7)
  - Ketoacidosis [Recovered/Resolved]
  - Fatigue [Not Recovered/Not Resolved]
  - Back pain [Unknown]
  - Constipation [Unknown]
  - Lethargy [Not Recovered/Not Resolved]
  - Dysphagia [Not Recovered/Not Resolved]
  - Headache [Unknown]
